FAERS Safety Report 19026797 (Version 3)
Quarter: 2021Q2

REPORT INFORMATION
  Report Type: Report from Study
  Country: US (occurrence: US)
  Receive Date: 20210318
  Receipt Date: 20210416
  Transmission Date: 20210717
  Serious: Yes (Hospitalization, Other)
  Sender: FDA-Public Use
  Company Number: US-AGIOS-2102US02544

PATIENT

DRUGS (4)
  1. POSACONAZOLE [Concomitant]
     Active Substance: POSACONAZOLE
     Indication: SINUSITIS
  2. TIBSOVO [Suspect]
     Active Substance: IVOSIDENIB
     Dosage: 250 MILLIGRAM, 2 TABLETS (500 MG) DAILY
     Route: 048
     Dates: start: 20210219
  3. TIBSOVO [Suspect]
     Active Substance: IVOSIDENIB
     Indication: ACUTE MYELOID LEUKAEMIA
     Dosage: 250 MILLIGRAM, 2 TABLETS (500 MG) DAILY
     Route: 048
     Dates: start: 20210219
  4. VENCLEXTA [Concomitant]
     Active Substance: VENETOCLAX
     Indication: ACUTE MYELOID LEUKAEMIA
     Dosage: 100MG X 2 DAYS THEN 200MG FOR 1 DAY THEN 400MG DAILY THEREAFTER
     Route: 065
     Dates: start: 20210219

REACTIONS (5)
  - Pancytopenia [Unknown]
  - Renal impairment [Unknown]
  - Hepatic function abnormal [Unknown]
  - Paranasal sinus and nasal cavity malignant neoplasm [Unknown]
  - Weight increased [Unknown]
